FAERS Safety Report 18916179 (Version 2)
Quarter: 2021Q1

REPORT INFORMATION
  Report Type: Report from Study
  Country: CA (occurrence: CA)
  Receive Date: 20210219
  Receipt Date: 20210329
  Transmission Date: 20210420
  Serious: No
  Sender: FDA-Public Use
  Company Number: CA-JNJFOC-20210214716

PATIENT
  Age: 5 Decade
  Sex: Male

DRUGS (1)
  1. SIMPONI [Suspect]
     Active Substance: GOLIMUMAB
     Indication: RHEUMATOID ARTHRITIS
     Dosage: 50.00 MG / 0.50 ML
     Route: 058
     Dates: start: 20181002

REACTIONS (2)
  - Device deployment issue [Unknown]
  - Underdose [Unknown]
